FAERS Safety Report 11203611 (Version 1)
Quarter: 2015Q2

REPORT INFORMATION
  Report Type: Report from Study
  Country: US (occurrence: US)
  Receive Date: 20150619
  Receipt Date: 20150619
  Transmission Date: 20150821
  Serious: Yes (Hospitalization)
  Sender: FDA-Public Use
  Company Number: US-009507513-1506USA005273

PATIENT
  Age: 45 Year
  Sex: Female
  Weight: 93.88 kg

DRUGS (27)
  1. TEMODAR [Suspect]
     Active Substance: TEMOZOLOMIDE
     Indication: BREAST CANCER
     Dosage: 150 MG/M2, UNK
     Route: 048
     Dates: start: 20141120, end: 20141124
  2. ZOFRAN [Concomitant]
     Active Substance: ONDANSETRON HYDROCHLORIDE
     Indication: NAUSEA
     Dosage: EVERY 6 HOURS, (4MG AS REQUIRED)
     Dates: start: 20141222
  3. FLEET (SODIUM PHOSPHATE, DIBASIC (+) SODIUM PHOSPHATE, MONOBASIC) [Concomitant]
     Indication: CONSTIPATION
     Dosage: 1 TABLET, PRN
     Dates: start: 20150103
  4. MARINOL [Concomitant]
     Active Substance: DRONABINOL
     Indication: NAUSEA
     Dosage: 5 MG, PRN
     Dates: start: 20150116
  5. MARINOL [Concomitant]
     Active Substance: DRONABINOL
     Indication: DECREASED APPETITE
  6. NEUPOGEN [Concomitant]
     Active Substance: FILGRASTIM
     Indication: NEUTROPHIL COUNT DECREASED
     Dosage: 480 MICROGRAM, ONCE
     Route: 058
     Dates: start: 20150122, end: 20150122
  7. OXYCODONE HYDROCHLORIDE. [Concomitant]
     Active Substance: OXYCODONE HYDROCHLORIDE
     Dosage: 40 MG, BID
     Route: 048
     Dates: start: 20141119, end: 20141123
  8. DULCOLAX [Concomitant]
     Active Substance: BISACODYL OR DOCUSATE SODIUM
     Indication: CONSTIPATION
     Dosage: 1 PER RECTUM, PRN (SUPPOSITORY)
     Route: 054
     Dates: start: 20141102
  9. HYDROMORPHONE [Concomitant]
     Active Substance: HYDROMORPHONE
     Indication: MUSCULOSKELETAL CHEST PAIN
     Dosage: 1-2 TABLETS, PRN
     Route: 048
     Dates: start: 20141124
  10. AFRIN (OXYMETAZOLINE HYDROCHLORIDE) [Concomitant]
     Indication: NASAL CONGESTION
     Dosage: 1SPRAY IN EACH NOSTRILS, PRN
     Route: 045
     Dates: start: 20141028
  11. COMPAZINE [Concomitant]
     Active Substance: PROCHLORPERAZINE MALEATE
     Indication: NAUSEA
     Dosage: EVERY 6 HOURS (10MG, AS REQUIRED)
     Dates: start: 20141211
  12. BACTRIM DS [Concomitant]
     Active Substance: SULFAMETHOXAZOLE\TRIMETHOPRIM
     Indication: INFECTION PROPHYLAXIS
     Dosage: 800-160 TABLET EVERY MONDAY, WEDNESDAY AND FRIDAY (3 IN 1 WEEK)
     Route: 048
     Dates: start: 20141222
  13. COLACE [Concomitant]
     Active Substance: DOCUSATE SODIUM
     Indication: CONSTIPATION PROPHYLAXIS
     Dosage: 100 MG, BID
     Route: 048
     Dates: start: 20141027
  14. XANAX [Concomitant]
     Active Substance: ALPRAZOLAM
     Indication: ANXIETY
     Dosage: 1-2 TABLETS EVERY 8 HOURS AS REQUIRED
     Route: 048
     Dates: start: 20141111
  15. NEUPOGEN [Concomitant]
     Active Substance: FILGRASTIM
     Dosage: 480 MICROGRAM, ONCE
     Route: 058
     Dates: start: 20150123, end: 20150123
  16. MIRALAX [Concomitant]
     Active Substance: POLYETHYLENE GLYCOL 3350
     Indication: CONSTIPATION
     Dosage: 17 G, QD
     Route: 048
     Dates: start: 20141102
  17. TYLENOL [Concomitant]
     Active Substance: ACETAMINOPHEN
     Indication: CHEST PAIN
     Dosage: EVERY 8 HOURS (650 MG, AS REQUIRED)
     Route: 048
     Dates: start: 20141124
  18. TEMODAR [Suspect]
     Active Substance: TEMOZOLOMIDE
     Dosage: 100 MG/M2, UNK
     Route: 048
     Dates: start: 20150224
  19. OXYCODONE HYDROCHLORIDE. [Concomitant]
     Active Substance: OXYCODONE HYDROCHLORIDE
     Dosage: 60 MG, BID
     Route: 048
     Dates: start: 20141123
  20. TEMODAR [Suspect]
     Active Substance: TEMOZOLOMIDE
     Indication: BREAST CANCER
     Dosage: 200 MG/M2, UNK
     Route: 042
     Dates: start: 20141219, end: 20141223
  21. ABT-888 [Suspect]
     Active Substance: VELIPARIB
     Dosage: 40 MG, UNK
     Route: 048
     Dates: start: 20141219
  22. OXYCODONE HYDROCHLORIDE. [Concomitant]
     Active Substance: OXYCODONE HYDROCHLORIDE
     Indication: MUSCULOSKELETAL CHEST PAIN
     Dosage: 40 MG, QD A REQUIRED
     Dates: start: 20141210
  23. ATIVAN [Concomitant]
     Active Substance: LORAZEPAM
     Indication: NAUSEA
     Dosage: 1 MG, PRN
     Route: 048
     Dates: start: 20150122
  24. TEMODAR [Suspect]
     Active Substance: TEMOZOLOMIDE
     Dosage: 150 MG/M2, UNK
     Route: 042
     Dates: start: 20150127, end: 20150131
  25. ABT-888 [Suspect]
     Active Substance: VELIPARIB
     Indication: BREAST CANCER
     Dosage: 40 MG, BID
     Route: 048
     Dates: start: 20141120, end: 20141126
  26. SENOKOT [Concomitant]
     Active Substance: SENNOSIDES
     Indication: CONSTIPATION
     Dosage: 2 TABLET, BID
     Route: 048
     Dates: start: 20141027
  27. FLEXERIL [Concomitant]
     Active Substance: CYCLOBENZAPRINE HYDROCHLORIDE
     Indication: CHEST PAIN
     Dosage: 10 MG, 1 IN 8 HOURS
     Dates: start: 20141114

REACTIONS (1)
  - Dehydration [Recovered/Resolved]

NARRATIVE: CASE EVENT DATE: 20150129
